FAERS Safety Report 22109882 (Version 1)
Quarter: 2023Q1

REPORT INFORMATION
  Report Type: Spontaneous
  Country: US (occurrence: US)
  Receive Date: 20230317
  Receipt Date: 20230317
  Transmission Date: 20230418
  Serious: Yes (Other)
  Sender: FDA-Public Use
  Company Number: US-CELLTRION INC.-2022US022311

PATIENT

DRUGS (3)
  1. TRUXIMA [Suspect]
     Active Substance: RITUXIMAB-ABBS
     Indication: Fibrillary glomerulonephritis
     Dosage: 10 MILLIGRAM PER MILLILITRE, Q2WEEKS
     Dates: start: 20221216
  2. LISINOPRIL [Concomitant]
     Active Substance: LISINOPRIL
  3. DOXAZOSIN [Concomitant]
     Active Substance: DOXAZOSIN MESYLATE
     Dosage: UNK

REACTIONS (2)
  - Fibrillary glomerulonephritis [Unknown]
  - Off label use [Unknown]
